FAERS Safety Report 9628815 (Version 1)
Quarter: 2013Q4

REPORT INFORMATION
  Report Type: Spontaneous
  Country: BR (occurrence: BR)
  Receive Date: 20131017
  Receipt Date: 20131017
  Transmission Date: 20140711
  Serious: Yes (Other)
  Sender: FDA-Public Use
  Company Number: BR-ELI_LILLY_AND_COMPANY-BR201310002516

PATIENT
  Age: 56 Year
  Sex: Female
  Weight: 52 kg

DRUGS (4)
  1. CYMBALTA [Suspect]
     Indication: PAIN
     Dosage: 30 MG, EACH MORNING
     Route: 048
     Dates: start: 201308
  2. ALENDRONATO SODICO [Concomitant]
     Indication: OSTEOPOROSIS
     Dosage: 70 MG, WEEKLY (1/W)
     Route: 065
  3. CALTRATE [Concomitant]
     Indication: OSTEOPOROSIS
     Dosage: 600 MG, QD
     Dates: start: 2003
  4. VITAMIN D [Concomitant]
     Dosage: UNK, OTHER
     Route: 065

REACTIONS (4)
  - Photopsia [Not Recovered/Not Resolved]
  - Eye disorder [Unknown]
  - Eye pain [Recovered/Resolved]
  - Headache [Recovered/Resolved]
